FAERS Safety Report 20991112 (Version 2)
Quarter: 2024Q4

REPORT INFORMATION
  Report Type: Spontaneous
  Country: IT (occurrence: IT)
  Receive Date: 20220622
  Receipt Date: 20241206
  Transmission Date: 20250115
  Serious: Yes (Death)
  Sender: ROCHE
  Company Number: IT-ROCHE-3117588

PATIENT
  Age: 82 Year
  Sex: Female

DRUGS (3)
  1. CAPECITABINE [Suspect]
     Active Substance: CAPECITABINE
     Indication: Colorectal cancer metastatic
     Dosage: FREQUENCY TEXT:BIWEEKLY
     Route: 065
  2. BEVACIZUMAB [Suspect]
     Active Substance: BEVACIZUMAB
     Indication: Colorectal cancer metastatic
     Dosage: BIWEEKLY
     Route: 065
  3. OXALIPLATIN [Suspect]
     Active Substance: OXALIPLATIN
     Indication: Colorectal cancer metastatic
     Dosage: BIWEEKLY
     Route: 065

REACTIONS (4)
  - Gastrointestinal toxicity [Unknown]
  - Hypertension [Unknown]
  - Asthenia [Unknown]
  - Disease progression [Fatal]
